FAERS Safety Report 4698810-9 (Version None)
Quarter: 2005Q2

REPORT INFORMATION
  Report Type: 
  Country: None (occurrence: None)
  Receive Date: 20050623
  Receipt Date: 20050613
  Transmission Date: 20051028
  Serious: Yes (Hospitalization)
  Sender: FDA-Public Use
  Company Number: GXKR2005GB01219

PATIENT
  Age: 75 Year
  Sex: Male

DRUGS (9)
  1. ACETYLSALICYLIC ACID (NGX) (ACETYLSALICYLIC ACID) [Suspect]
     Indication: MYOCARDIAL ISCHAEMIA
     Dosage: 75 MG, QD, ORAL
     Route: 048
     Dates: start: 20030101, end: 20050519
  2. DICLOFENAC (DICLOFENAC) [Suspect]
     Dosage: 100 MG, QD
  3. CLOPIDOGREL BISULFATE [Suspect]
     Indication: CORONARY ARTERY SURGERY
     Dosage: 75 MG, QD, ORAL
     Route: 048
     Dates: start: 20030101, end: 20050519
  4. ATORVASTATIN CALCIUM [Concomitant]
  5. BEZAFIBRATE (BEZAFIBRATE) [Concomitant]
  6. DOXAZOSIN (DOXAZOSIN) [Concomitant]
  7. BECLAZONE (BECLOMETASONE DIPROPIONATE) [Concomitant]
  8. ALBUTEROL SULFATE HFA [Concomitant]
  9. FUROSEMIDE [Concomitant]

REACTIONS (5)
  - ANAEMIA [None]
  - DIZZINESS [None]
  - GASTRIC ULCER [None]
  - MELAENA [None]
  - THROMBOSIS [None]
